FAERS Safety Report 5163791-0 (Version None)
Quarter: 2006Q4

REPORT INFORMATION
  Report Type: 
  Country: None (occurrence: None)
  Receive Date: 20061124
  Receipt Date: 20061114
  Transmission Date: 20070319
  Serious: Yes (Other)
  Sender: FDA-Public Use
  Company Number: 2006142762

PATIENT
  Sex: Male

DRUGS (1)
  1. VIAGRA [Suspect]
     Indication: ERECTILE DYSFUNCTION
     Dosage: 100 MG

REACTIONS (4)
  - DRUG EFFECT DECREASED [None]
  - HAIR GROWTH ABNORMAL [None]
  - THERAPEUTIC RESPONSE UNEXPECTED [None]
  - VISUAL DISTURBANCE [None]
